FAERS Safety Report 8848597 (Version 2)
Quarter: 2012Q4

REPORT INFORMATION
  Report Type: Report from Study
  Country: FR (occurrence: FR)
  Receive Date: 20121018
  Receipt Date: 20121101
  Transmission Date: 20130627
  Serious: Yes (Death, Other)
  Sender: FDA-Public Use
  Company Number: FR-ROCHE-1145916

PATIENT
  Age: 81 Year
  Sex: Male
  Weight: 90.07 kg

DRUGS (5)
  1. RANIBIZUMAB [Suspect]
     Indication: AGE-RELATED MACULAR DEGENERATION
     Route: 050
     Dates: start: 20081114
  2. RANIBIZUMAB [Suspect]
     Route: 050
     Dates: start: 20081222
  3. RANIBIZUMAB [Suspect]
     Route: 050
     Dates: start: 20100913
  4. RANIBIZUMAB [Suspect]
     Route: 050
     Dates: start: 20120212
  5. RANIBIZUMAB [Suspect]
     Route: 050
     Dates: start: 20110312

REACTIONS (2)
  - Cataract [Unknown]
  - Pancreatic carcinoma [Fatal]
